FAERS Safety Report 5691369-9 (Version None)
Quarter: 2008Q2

REPORT INFORMATION
  Report Type: 
  Country: None (occurrence: None)
  Receive Date: 20080402
  Receipt Date: 20080314
  Transmission Date: 20081010
  Serious: Yes (Hospitalization)
  Sender: FDA-Public Use
  Company Number: AU-BAYER-200815069GPV

PATIENT

DRUGS (1)
  1. ULTRAVIST 370 [Suspect]
     Route: 042
     Dates: start: 20080305

REACTIONS (2)
  - GRAND MAL CONVULSION [None]
  - NAUSEA [None]
